FAERS Safety Report 14666762 (Version 1)
Quarter: 2018Q1

REPORT INFORMATION
  Report Type: Spontaneous
  Country: FI (occurrence: FI)
  Receive Date: 20180322
  Receipt Date: 20180322
  Transmission Date: 20180509
  Serious: Yes (Death)
  Sender: FDA-Public Use
  Company Number: FI-CIPLA LTD.-2018FI11946

PATIENT

DRUGS (1)
  1. LEVOFLOXACIN. [Suspect]
     Active Substance: LEVOFLOXACIN
     Indication: PRODUCT USED FOR UNKNOWN INDICATION
     Dosage: UNK
     Route: 048
     Dates: start: 20170101

REACTIONS (9)
  - Arthralgia [Fatal]
  - Tendon rupture [Fatal]
  - Rash [Fatal]
  - Limb injury [Fatal]
  - Visual impairment [Fatal]
  - Muscular weakness [Fatal]
  - Monoplegia [Fatal]
  - Fall [Fatal]
  - Lip erosion [Fatal]

NARRATIVE: CASE EVENT DATE: 20170101
